FAERS Safety Report 18422189 (Version 4)
Quarter: 2022Q1

REPORT INFORMATION
  Report Type: Spontaneous
  Country: US (occurrence: US)
  Receive Date: 20201023
  Receipt Date: 20220315
  Transmission Date: 20220424
  Serious: No
  Sender: FDA-Public Use
  Company Number: US-PFIZER INC-2019524317

PATIENT
  Age: 61 Year

DRUGS (1)
  1. PRISTIQ EXTENDED-RELEASE [Suspect]
     Active Substance: DESVENLAFAXINE SUCCINATE
     Indication: Depression
     Dosage: UNK

REACTIONS (4)
  - Stress [Unknown]
  - Emotional distress [Unknown]
  - Hypoacusis [Unknown]
  - Ear disorder [Unknown]
